FAERS Safety Report 9149465 (Version 1)
Quarter: 2013Q1

REPORT INFORMATION
  Report Type: Spontaneous
  Country: US (occurrence: US)
  Receive Date: 20130308
  Receipt Date: 20130308
  Transmission Date: 20140127
  Serious: Yes (Other)
  Sender: FDA-Public Use
  Company Number: US-ELI_LILLY_AND_COMPANY-US201302010109

PATIENT
  Sex: Female

DRUGS (2)
  1. CYMBALTA [Suspect]
     Indication: FIBROMYALGIA
     Dosage: 30 MG, UNK
     Dates: start: 2010, end: 201212
  2. TOPROL [Concomitant]
     Indication: HYPERTENSION
     Dosage: UNK
     Dates: start: 2006, end: 201212

REACTIONS (2)
  - Blister [Recovered/Resolved]
  - Rash [Recovered/Resolved]
